FAERS Safety Report 5595854-X (Version None)
Quarter: 2008Q1

REPORT INFORMATION
  Report Type: 
  Country: None (occurrence: None)
  Receive Date: 20080118
  Receipt Date: 20080115
  Transmission Date: 20080703
  Serious: Yes (Death, Other)
  Sender: FDA-Public Use
  Company Number: US-ASTRAZENECA-2006UW07752

PATIENT
  Age: 17645 Day
  Sex: Male
  Weight: 81.8 kg

DRUGS (2)
  1. SEROQUEL [Suspect]
     Indication: DEPRESSION
     Route: 048
     Dates: start: 20020712, end: 20050709
  2. SEROQUEL [Suspect]
     Indication: NERVOUSNESS
     Route: 048
     Dates: start: 20020712, end: 20050709

REACTIONS (3)
  - CARDIAC DISORDER [None]
  - DEATH [None]
  - TYPE 2 DIABETES MELLITUS [None]
